FAERS Safety Report 14254825 (Version 1)
Quarter: 2017Q4

REPORT INFORMATION
  Report Type: Spontaneous
  Country: US (occurrence: None)
  Receive Date: 20171205
  Receipt Date: 20171205
  Transmission Date: 20180321
  Serious: No
  Sender: FDA-Public Use
  Company Number: None

PATIENT
  Age: 65 Year
  Sex: Female

DRUGS (1)
  1. ROPINIROLE, 0.5 MG [Suspect]
     Active Substance: ROPINIROLE
     Dosage: 1 MG NIGHTLY ORAL
     Route: 048
     Dates: start: 20170731, end: 20171031

REACTIONS (2)
  - Product substitution issue [None]
  - Drug ineffective [None]

NARRATIVE: CASE EVENT DATE: 20171113
